FAERS Safety Report 19933717 (Version 1)
Quarter: 2021Q4

REPORT INFORMATION
  Report Type: Spontaneous
  Country: US (occurrence: US)
  Receive Date: 20211008
  Receipt Date: 20211008
  Transmission Date: 20220303
  Serious: No
  Sender: FDA-Public Use
  Company Number: US-PFIZER INC-202101182881

PATIENT
  Sex: Female

DRUGS (1)
  1. GABAPENTIN [Suspect]
     Active Substance: GABAPENTIN
     Indication: Neuropathy peripheral
     Dosage: UNK

REACTIONS (6)
  - Drug ineffective [Unknown]
  - Hypoaesthesia [Unknown]
  - Constipation [Unknown]
  - Tremor [Unknown]
  - Gait disturbance [Unknown]
  - Asthenia [Unknown]
